FAERS Safety Report 6138025-0 (Version None)
Quarter: 2009Q1

REPORT INFORMATION
  Report Type: 
  Country: None (occurrence: None)
  Receive Date: 20090331
  Receipt Date: 20090130
  Transmission Date: 20090719
  Serious: Yes (Death)
  Sender: FDA-Public Use
  Company Number: US-TYCO HEALTHCARE/MALLINCKRODT-T200900476

PATIENT
  Age: 23 Year
  Sex: Female

DRUGS (8)
  1. MORPHINE [Suspect]
  2. METHADOSE [Suspect]
  3. BUPROPION HCL [Suspect]
  4. COCAINE [Suspect]
  5. BENZODIAZEPINE DERIVATIVES [Suspect]
  6. QUETIAPINE [Suspect]
  7. CYCLOBENZAPRINE [Suspect]
  8. MARIJUANA [Suspect]

REACTIONS (9)
  - ASPIRATION [None]
  - BODY TEMPERATURE INCREASED [None]
  - COMPLETED SUICIDE [None]
  - CONVULSION [None]
  - DELIRIUM [None]
  - DRUG TOXICITY [None]
  - ELECTROMECHANICAL DISSOCIATION [None]
  - HYPOTENSION [None]
  - RESPIRATORY ARREST [None]
